FAERS Safety Report 22276793 (Version 5)
Quarter: 2024Q1

REPORT INFORMATION
  Report Type: Other
  Country: DE (occurrence: None)
  Receive Date: 20230503
  Receipt Date: 20240131
  Transmission Date: 20240410
  Serious: Yes (Hospitalization)
  Sender: FDA-Public Use
  Company Number: DE-ROCHE-3337489

PATIENT
  Age: 61 Year
  Sex: Female

DRUGS (16)
  1. OCREVUS [Suspect]
     Active Substance: OCRELIZUMAB
     Indication: Relapsing multiple sclerosis
     Route: 042
     Dates: start: 20180712, end: 20180726
  2. OCREVUS [Suspect]
     Active Substance: OCRELIZUMAB
     Route: 042
     Dates: start: 20190131
  3. GABAPENTIN [Concomitant]
     Active Substance: GABAPENTIN
     Indication: Musculoskeletal stiffness
     Route: 048
     Dates: start: 20190725
  4. BACLOFEN [Concomitant]
     Active Substance: BACLOFEN
     Indication: Diplegia
     Route: 048
     Dates: start: 20171110, end: 20200319
  5. BACLOFEN [Concomitant]
     Active Substance: BACLOFEN
     Indication: Muscular weakness
     Route: 048
     Dates: start: 20200319
  6. NABIXIMOLS [Concomitant]
     Active Substance: NABIXIMOLS
     Indication: Multiple sclerosis
     Route: 002
     Dates: start: 20200319
  7. CANDESARTAN [Concomitant]
     Active Substance: CANDESARTAN
     Indication: Hypertension
     Route: 048
  8. PROGESTERONE [Concomitant]
     Active Substance: PROGESTERONE
     Route: 048
  9. ARCOXIA [Concomitant]
     Active Substance: ETORICOXIB
     Indication: Osteoarthritis
     Route: 048
     Dates: start: 20200725
  10. MODAFINIL [Concomitant]
     Active Substance: MODAFINIL
     Indication: Fatigue
     Route: 048
     Dates: start: 20181022
  11. CITALOPRAM [Concomitant]
     Active Substance: CITALOPRAM HYDROBROMIDE
     Indication: Depressed mood
     Route: 048
     Dates: start: 20190328
  12. BENSERAZIDE\LEVODOPA [Concomitant]
     Active Substance: BENSERAZIDE\LEVODOPA
     Indication: Musculoskeletal stiffness
     Route: 048
     Dates: start: 20190328
  13. ESTRADIOL [Concomitant]
     Active Substance: ESTRADIOL
     Route: 062
  14. VIGIL [Concomitant]
     Indication: Fatigue
     Route: 048
     Dates: start: 20190328
  15. METHYLPREDNISOLONE [Concomitant]
     Active Substance: METHYLPREDNISOLONE
     Route: 042
     Dates: start: 20210112, end: 20210114
  16. METHYLPREDNISOLONE [Concomitant]
     Active Substance: METHYLPREDNISOLONE
     Dates: start: 20170310, end: 20170314

REACTIONS (4)
  - Atypical pneumonia [Recovered/Resolved]
  - Respiratory failure [Unknown]
  - Pneumonia [Unknown]
  - Hypertension [Not Recovered/Not Resolved]

NARRATIVE: CASE EVENT DATE: 20230307
